FAERS Safety Report 4919384-0 (Version None)
Quarter: 2006Q1

REPORT INFORMATION
  Report Type: 
  Country: None (occurrence: None)
  Receive Date: 20060216
  Receipt Date: 20060201
  Transmission Date: 20060701
  Serious: No
  Sender: FDA-Public Use
  Company Number: GB200602000102

PATIENT
  Age: 27 Year
  Sex: Male

DRUGS (1)
  1. ZYPREXA [Suspect]
     Dates: end: 20060131

REACTIONS (4)
  - BLOOD GLUCOSE INCREASED [None]
  - INCREASED APPETITE [None]
  - NEUTROPENIA [None]
  - WEIGHT INCREASED [None]
